FAERS Safety Report 10472495 (Version 1)
Quarter: 2014Q3

REPORT INFORMATION
  Report Type: Spontaneous
  Country: GB (occurrence: GB)
  Receive Date: 20140924
  Receipt Date: 20140924
  Transmission Date: 20150326
  Serious: Yes (Hospitalization, Other)
  Sender: FDA-Public Use
  Company Number: GB-TEVA-510413ISR

PATIENT
  Sex: Female

DRUGS (9)
  1. ASPIRIN. [Concomitant]
     Active Substance: ASPIRIN
     Indication: THROMBOTIC THROMBOCYTOPENIC PURPURA
     Dosage: 75 MILLIGRAM DAILY;
     Route: 048
  2. MABTHERA [Suspect]
     Active Substance: RITUXIMAB
     Dosage: 500 MG VIAL AND 100MG VIAL.
     Route: 065
     Dates: start: 20140818
  3. METFORMIN [Concomitant]
     Active Substance: METFORMIN HYDROCHLORIDE
     Indication: TYPE 2 DIABETES MELLITUS
     Dosage: 500 MILLIGRAM DAILY;
     Route: 048
  4. MABTHERA [Suspect]
     Active Substance: RITUXIMAB
     Route: 065
     Dates: start: 2013
  5. MABTHERA [Suspect]
     Active Substance: RITUXIMAB
     Route: 065
     Dates: start: 2006
  6. MABTHERA [Suspect]
     Active Substance: RITUXIMAB
     Indication: THROMBOTIC THROMBOCYTOPENIC PURPURA
     Dosage: 500 MG VIAL AND 100MG VIAL.
     Route: 065
     Dates: start: 20140826
  7. LOSARTAN [Suspect]
     Active Substance: LOSARTAN
     Indication: HYPERTENSION
     Route: 048
  8. MABTHERA [Suspect]
     Active Substance: RITUXIMAB
     Dosage: 500 MG VIAL AND 100MG VIAL.
     Route: 065
     Dates: start: 20140811
  9. AMLODIPINE [Concomitant]
     Active Substance: AMLODIPINE BESYLATE
     Indication: HYPERTENSION

REACTIONS (7)
  - Thrombotic thrombocytopenic purpura [Unknown]
  - Swollen tongue [Recovering/Resolving]
  - ADAMTS13 activity decreased [Unknown]
  - Left ventricular hypertrophy [Unknown]
  - Circulatory collapse [Unknown]
  - Swelling face [Unknown]
  - Pruritus [Unknown]

NARRATIVE: CASE EVENT DATE: 2013
